FAERS Safety Report 9498582 (Version 1)
Quarter: 2013Q3

REPORT INFORMATION
  Report Type: Spontaneous
  Country: US (occurrence: US)
  Receive Date: 20130904
  Receipt Date: 20130904
  Transmission Date: 20140515
  Serious: No
  Sender: FDA-Public Use
  Company Number: US-PFIZER INC-2013254729

PATIENT
  Age: 52 Year
  Sex: Female
  Weight: 71.65 kg

DRUGS (5)
  1. LYRICA [Suspect]
     Indication: INTERVERTEBRAL DISC PROTRUSION
     Dosage: UNK
     Dates: start: 2009
  2. LYRICA [Suspect]
     Indication: PAIN IN EXTREMITY
     Dosage: 100 MG, 2X/DAY
     Dates: end: 201308
  3. HYDROCODONE [Suspect]
     Indication: BACK PAIN
     Dosage: 7.5 MG, 3X/DAY
  4. OPANA [Suspect]
     Indication: BACK PAIN
     Dosage: 20 MG, 2X/DAY
  5. LOVASTATIN [Concomitant]
     Indication: BLOOD CHOLESTEROL INCREASED
     Dosage: 20 MG, 1X/DAY

REACTIONS (2)
  - Back pain [Unknown]
  - Back pain [Unknown]
